FAERS Safety Report 21098681 (Version 1)
Quarter: 2022Q3

REPORT INFORMATION
  Report Type: Spontaneous
  Country: US (occurrence: None)
  Receive Date: 20220718
  Receipt Date: 20220718
  Transmission Date: 20221027
  Serious: No
  Sender: FDA-Public Use
  Company Number: None

PATIENT
  Sex: Male

DRUGS (1)
  1. DEFERASIROX [Suspect]
     Active Substance: DEFERASIROX
     Indication: Illness
     Dosage: 1260MG DAILY ORAL?
     Route: 048
     Dates: start: 20220624

REACTIONS (3)
  - Chest pain [None]
  - Incorrect dose administered [None]
  - Nonspecific reaction [None]
